FAERS Safety Report 18588943 (Version 1)
Quarter: 2020Q4

REPORT INFORMATION
  Report Type: Report from Study
  Country: None (occurrence: NL)
  Receive Date: 20201207
  Receipt Date: 20201207
  Transmission Date: 20210114
  Serious: Yes (Other)
  Sender: FDA-Public Use
  Company Number: NL-ABBVIE-20K-114-3679009-00

PATIENT
  Sex: Female

DRUGS (3)
  1. MACROGOL [Concomitant]
     Active Substance: POLYETHYLENE GLYCOLS
     Indication: ABNORMAL FAECES
  2. DUODOPA [Suspect]
     Active Substance: CARBIDOPA\LEVODOPA
     Indication: PARKINSON^S DISEASE
     Dosage: MD: 4.6 ML
     Route: 050
  3. DUODOPA [Suspect]
     Active Substance: CARBIDOPA\LEVODOPA
     Dosage: CND: 4.6 ML/HR, END: 4.0 ML
     Route: 050

REACTIONS (6)
  - Faecal volume decreased [Recovered/Resolved]
  - Constipation [Recovered/Resolved]
  - Device kink [Unknown]
  - Gastrointestinal motility disorder [Recovered/Resolved]
  - Dyschezia [Recovered/Resolved]
  - Polyp [Recovered/Resolved]
